FAERS Safety Report 7001766-7 (Version None)
Quarter: 2010Q3

REPORT INFORMATION
  Report Type: 
  Country: None (occurrence: None)
  Receive Date: 20100920
  Receipt Date: 20090923
  Transmission Date: 20110219
  Serious: Yes (Hospitalization, Other)
  Sender: FDA-Public Use
  Company Number: US-ASTRAZENECA-2007UW13900

PATIENT
  Age: 57 Year
  Sex: Male
  Weight: 71.7 kg

DRUGS (7)
  1. SEROQUEL [Suspect]
     Indication: SLEEP DISORDER
     Route: 048
     Dates: start: 19970101, end: 20000101
  2. SEROQUEL [Suspect]
     Indication: DEPRESSION
     Route: 048
     Dates: start: 19970101, end: 20000101
  3. RISPERDAL [Concomitant]
     Indication: DEPRESSION
     Dates: start: 19970101, end: 19990101
  4. ZYPREXA [Concomitant]
     Indication: DEPRESSION
  5. GEODON [Concomitant]
  6. NAVANE [Concomitant]
  7. PROZAC [Concomitant]

REACTIONS (3)
  - DIABETIC COMA [None]
  - DIABETIC KETOACIDOSIS [None]
  - TYPE 2 DIABETES MELLITUS [None]
